FAERS Safety Report 5201235-0 (Version None)
Quarter: 2007Q1

REPORT INFORMATION
  Report Type: 
  Country: None (occurrence: None)
  Receive Date: 20070103
  Receipt Date: 20061215
  Transmission Date: 20070707
  Serious: Yes (Hospitalization)
  Sender: FDA-Public Use
  Company Number: FSC_0020_2006

PATIENT
  Age: 80 Year
  Sex: Male

DRUGS (5)
  1. ISOPTIN [Suspect]
     Indication: HYPERTENSION
     Dosage: 120 MG QD PO
     Route: 048
  2. ALFUZOSINE CHLORHYDRATE [Suspect]
     Dosage: 10 MG QD PO
     Route: 048
  3. VALSARTAN [Suspect]
     Dosage: 80 MG QD PO
     Route: 048
  4. PIRIBEDIL [Concomitant]
  5. PRAVASTATIN [Concomitant]

REACTIONS (2)
  - DRUG INTERACTION [None]
  - ORTHOSTATIC HYPOTENSION [None]
